FAERS Safety Report 18994312 (Version 3)
Quarter: 2021Q4

REPORT INFORMATION
  Report Type: Spontaneous
  Country: GB (occurrence: GB)
  Receive Date: 20210311
  Receipt Date: 20211011
  Transmission Date: 20220304
  Serious: Yes (Other)
  Sender: FDA-Public Use
  Company Number: None

PATIENT
  Sex: Female

DRUGS (2)
  1. ALENDRONATE SODIUM [Suspect]
     Active Substance: ALENDRONATE SODIUM
     Indication: Osteoporosis
     Dosage: ONGOING, FOR ABOUT 2 YEARS, ONCE A WEEK
     Route: 048
  2. CALCIUM CARBONATE\CHOLECALCIFEROL [Concomitant]
     Active Substance: CALCIUM CARBONATE\CHOLECALCIFEROL
     Indication: Ill-defined disorder
     Dosage: UNK

REACTIONS (6)
  - Hangover [Unknown]
  - Sleep disorder [Unknown]
  - Sneezing [Unknown]
  - Skin irritation [Unknown]
  - Myalgia [Unknown]
  - Arthralgia [Unknown]
